FAERS Safety Report 6752357-4 (Version None)
Quarter: 2010Q2

REPORT INFORMATION
  Report Type: 
  Country: None (occurrence: None)
  Receive Date: 20100528
  Receipt Date: 20100520
  Transmission Date: 20101027
  Serious: Yes (Other)
  Sender: FDA-Public Use
  Company Number: DSA_43034_2010

PATIENT
  Sex: Female

DRUGS (38)
  1. XENAZINE [Suspect]
     Indication: TARDIVE DYSKINESIA
     Dosage: SEE IMAGE
     Route: 048
     Dates: start: 20100401, end: 20100401
  2. XENAZINE [Suspect]
     Indication: TARDIVE DYSKINESIA
     Dosage: SEE IMAGE
     Route: 048
     Dates: start: 20100401, end: 20100429
  3. XENAZINE [Suspect]
     Indication: TARDIVE DYSKINESIA
     Dosage: SEE IMAGE
     Route: 048
     Dates: start: 20100503, end: 20100501
  4. XENAZINE [Suspect]
     Indication: TARDIVE DYSKINESIA
     Dosage: SEE IMAGE
     Route: 048
     Dates: start: 20100430, end: 20100502
  5. XENAZINE [Suspect]
     Indication: TARDIVE DYSKINESIA
     Dosage: SEE IMAGE
     Route: 048
     Dates: start: 20100403
  6. XENAZINE [Suspect]
     Indication: TARDIVE DYSKINESIA
     Dosage: SEE IMAGE
     Route: 048
     Dates: start: 20100501
  7. ALLEGRA-D 12 HOUR [Concomitant]
  8. AMBIEN [Concomitant]
  9. LUNESTA [Concomitant]
  10. CARAFATE [Concomitant]
  11. ANTIVERT /00072802/ [Concomitant]
  12. COREG [Concomitant]
  13. CRESTOR [Concomitant]
  14. KLONOPIN [Concomitant]
  15. CYMBALTA [Concomitant]
  16. CLONIDINE [Concomitant]
  17. BENTYL [Concomitant]
  18. FIORICET [Concomitant]
  19. IRON [Concomitant]
  20. IMITREX /1044801/ [Concomitant]
  21. LEVOTHYROXINE SODIUM [Concomitant]
  22. NEXIUM [Concomitant]
  23. LOMOTIL [Concomitant]
  24. PEPCID [Concomitant]
  25. MULTI-VITAMINS [Concomitant]
  26. SKELAXIN [Concomitant]
  27. TRICOR [Concomitant]
  28. VITAMIN D [Concomitant]
  29. ZOLOFT [Concomitant]
  30. STARLIX [Concomitant]
  31. VALIUM [Concomitant]
  32. SUDAFED /00076302/ [Concomitant]
  33. ALKA SELTZER PLUS COLD [Concomitant]
  34. DEMEROL [Concomitant]
  35. TREXIMET [Concomitant]
  36. EVOXAC [Concomitant]
  37. PEPTO-BISMOL [Concomitant]
  38. TESSALON [Concomitant]

REACTIONS (10)
  - AGITATION [None]
  - ANGER [None]
  - CONDITION AGGRAVATED [None]
  - EYE DISCHARGE [None]
  - FATIGUE [None]
  - FEELING ABNORMAL [None]
  - MIGRAINE [None]
  - MOOD SWINGS [None]
  - NAUSEA [None]
  - SUICIDAL IDEATION [None]
